FAERS Safety Report 6891512-X (Version None)
Quarter: 2010Q3

REPORT INFORMATION
  Report Type: 
  Country: None (occurrence: None)
  Receive Date: 20100731
  Receipt Date: 20070828
  Transmission Date: 20110219
  Serious: No
  Sender: FDA-Public Use
  Company Number: US-PFIZER INC-2007024585

PATIENT
  Sex: Female
  Weight: 52.16 kg

DRUGS (2)
  1. FLAGYL [Suspect]
     Indication: CLOSTRIDIAL INFECTION
     Route: 048
  2. WELLBUTRIN [Concomitant]

REACTIONS (3)
  - ABDOMINAL PAIN [None]
  - DIARRHOEA [None]
  - DRUG INEFFECTIVE [None]
